FAERS Safety Report 4421829-X (Version None)
Quarter: 2004Q3

REPORT INFORMATION
  Report Type: 
  Country: None (occurrence: None)
  Receive Date: 20040806
  Receipt Date: 20040723
  Transmission Date: 20050211
  Serious: Yes (Death, Hospitalization)
  Sender: FDA-Public Use
  Company Number: CERZ-10612

PATIENT
  Age: 59 Year
  Sex: Female
  Weight: 45.3597 kg

DRUGS (1)
  1. CEREZYME [Suspect]
     Indication: GAUCHER'S DISEASE

REACTIONS (5)
  - ANAEMIA [None]
  - CHRONIC OBSTRUCTIVE AIRWAYS DISEASE EXACERBATED [None]
  - CONFUSIONAL STATE [None]
  - WEIGHT DECREASED [None]
  - WHOLE BLOOD TRANSFUSION [None]
